FAERS Safety Report 11945259 (Version 1)
Quarter: 2016Q1

REPORT INFORMATION
  Report Type: Spontaneous
  Country: US (occurrence: US)
  Receive Date: 20160125
  Receipt Date: 20160125
  Transmission Date: 20160526
  Serious: No
  Sender: FDA-Public Use
  Company Number: US-MISSION PHARMACAL COMPANY-1046866

PATIENT
  Age: 20 Year
  Sex: Male

DRUGS (2)
  1. THIOLA [Suspect]
     Active Substance: TIOPRONIN
     Indication: CYSTINURIA
     Route: 065
     Dates: start: 20150911
  2. THIOLA [Concomitant]
     Active Substance: TIOPRONIN
     Dates: start: 20150911

REACTIONS (6)
  - Nephrolithiasis [Unknown]
  - Ageusia [Unknown]
  - Lymphadenopathy [Unknown]
  - Dysgeusia [Unknown]
  - Abdominal mass [None]
  - Abdominal pain [Recovered/Resolved]
